FAERS Safety Report 9014014 (Version 1)
Quarter: 2013Q1

REPORT INFORMATION
  Report Type: Spontaneous
  Country: US (occurrence: None)
  Receive Date: 20130109
  Receipt Date: 20130109
  Transmission Date: 20140127
  Serious: Yes (Other)
  Sender: FDA-Public Use
  Company Number: None

PATIENT
  Age: 37 Year
  Sex: Female
  Weight: 74.84 kg

DRUGS (1)
  1. CLEAN AND CLEAR ADVANTAGE 2-IN-1 ACNE AND MARK ERASER KIT [Suspect]
     Dosage: SMALL AMOUNT ON FINGERTIPS ONE TIME TOP
     Route: 061
     Dates: start: 20121128, end: 20121129

REACTIONS (4)
  - Erythema [None]
  - Skin burning sensation [None]
  - Pruritus [None]
  - Swelling face [None]
